FAERS Safety Report 12255177 (Version 1)
Quarter: 2016Q2

REPORT INFORMATION
  Report Type: Spontaneous
  Country: DZ (occurrence: DZ)
  Receive Date: 20160412
  Receipt Date: 20160412
  Transmission Date: 20160815
  Serious: Yes (Other)
  Sender: FDA-Public Use
  Company Number: PHHY2016DZ044599

PATIENT
  Age: 23 Year
  Sex: Male

DRUGS (8)
  1. METHOTREXATE [Concomitant]
     Active Substance: METHOTREXATE
     Indication: PROPHYLAXIS AGAINST GRAFT VERSUS HOST DISEASE
  2. ACYCLOVIR. [Concomitant]
     Active Substance: ACYCLOVIR
     Indication: ANTIVIRAL PROPHYLAXIS
     Route: 065
  3. METHOTREXATE [Concomitant]
     Active Substance: METHOTREXATE
     Indication: STEM CELL TRANSPLANT
     Route: 065
  4. SANDIMMUN [Interacting]
     Active Substance: CYCLOSPORINE
     Indication: PROPHYLAXIS AGAINST GRAFT VERSUS HOST DISEASE
  5. METHYLPREDNISOLONE. [Suspect]
     Active Substance: METHYLPREDNISOLONE
     Indication: BONE MARROW CONDITIONING REGIMEN
     Dosage: 2 MG/KG, QD
     Route: 042
  6. ANTITHYMOCYTE IMMUNOGLOBULIN (RABBIT) [Concomitant]
     Active Substance: LAPINE T-LYMPHOCYTE IMMUNE GLOBULIN
     Indication: BONE MARROW CONDITIONING REGIMEN
     Dosage: 12 MG/KG, UNK
     Route: 042
  7. SANDIMMUN [Interacting]
     Active Substance: CYCLOSPORINE
     Indication: STEM CELL TRANSPLANT
     Dosage: 3 MG/KG, QD
     Route: 041
  8. CYCLOPHOSPHAMIDE. [Concomitant]
     Active Substance: CYCLOPHOSPHAMIDE
     Indication: BONE MARROW CONDITIONING REGIMEN
     Dosage: 200 MG/KG, UNK
     Route: 042

REACTIONS (19)
  - Posterior reversible encephalopathy syndrome [Recovered/Resolved]
  - Hypertension [Recovered/Resolved]
  - Vertigo [Recovered/Resolved]
  - Nausea [Recovered/Resolved]
  - Tremor [Recovered/Resolved]
  - Anaemia [Recovered/Resolved]
  - Retinal haemorrhage [Recovered/Resolved]
  - Pupillary deformity [Recovered/Resolved]
  - Thrombocytopenia [Recovered/Resolved]
  - Optic neuropathy [Recovered/Resolved]
  - Vomiting [Recovered/Resolved]
  - Visual impairment [Recovered/Resolved]
  - Papilloedema [Recovered/Resolved]
  - Drug interaction [Unknown]
  - Visual acuity reduced [Recovered/Resolved]
  - Nystagmus [Recovered/Resolved]
  - Balance disorder [Recovered/Resolved]
  - Immunosuppressant drug level increased [Unknown]
  - Neutropenia [Recovered/Resolved]
